FAERS Safety Report 5261756-1 (Version None)
Quarter: 2007Q1

REPORT INFORMATION
  Report Type: 
  Country: None (occurrence: None)
  Receive Date: 20061215
  Receipt Date: 20051102
  Transmission Date: 20070707
  Serious: Yes (Death)
  Sender: FDA-Public Use
  Company Number: 05H-163-0303389-00

PATIENT
  Age: 8 Year
  Sex: Female
  Weight: 25 kg

DRUGS (3)
  1. MORPHINE SULFATE INJ [Suspect]
     Indication: DRUG USE FOR UNKNOWN INDICATION
     Dosage: 1 MG/HR, CONTINUOUS, INTRAVENOUS 0.5 GM, 30 MIN LOCKOUT + UNSPECIFIED 1HR LIMIT, INTRAVENOUS
     Route: 042
     Dates: start: 20011023, end: 20011025
  2. DEPAKOTE [Concomitant]
  3. ANTIBIOTICS (ANTIBIOTICS) [Concomitant]

REACTIONS (1)
  - RESPIRATORY ARREST [None]
